FAERS Safety Report 6880252-9 (Version None)
Quarter: 2010Q3

REPORT INFORMATION
  Report Type: 
  Country: None (occurrence: None)
  Receive Date: 20100728
  Receipt Date: 20100715
  Transmission Date: 20110219
  Serious: Yes (Other)
  Sender: FDA-Public Use
  Company Number: BR-PFIZER INC-2010088471

PATIENT
  Age: 43 Year
  Sex: Female
  Weight: 60 kg

DRUGS (4)
  1. CHAMPIX [Suspect]
     Indication: SMOKING CESSATION THERAPY
     Dosage: UNK,ONE TABLET IN THE DAY AND ONE TABLET AT NIGHT
     Route: 048
     Dates: start: 20100201
  2. CYMBALTA [Concomitant]
     Dosage: UNK
  3. ALPRAZOLAM [Concomitant]
     Dosage: UNK
  4. AMLODIPINE BESILATE [Concomitant]
     Indication: HYPERTENSION
     Dosage: UNK

REACTIONS (1)
  - PLEURAL EFFUSION [None]
